FAERS Safety Report 11195160 (Version 1)
Quarter: 2015Q2

REPORT INFORMATION
  Report Type: Spontaneous
  Country: AT (occurrence: None)
  Receive Date: 20150615
  Receipt Date: 20150615
  Transmission Date: 20150821
  Serious: Yes (Other)
  Sender: FDA-Public Use
  Company Number: 2015COR00116

PATIENT
  Age: 53 Year
  Sex: Female

DRUGS (7)
  1. ACETYLSALICYLIC ACID [Concomitant]
     Active Substance: ASPIRIN
  2. NICORANDIL [Concomitant]
     Active Substance: NICORANDIL
  3. BISOPROLOL (BISOPROLOL) [Suspect]
     Active Substance: BISOPROLOL
     Indication: HYPERTENSION
  4. MAGNESIUM [Concomitant]
     Active Substance: MAGNESIUM
  5. PANTOPRAZOLE [Concomitant]
     Active Substance: PANTOPRAZOLE SODIUM
  6. VITAMIN B COMPLEX [Concomitant]
     Active Substance: CYANOCOBALAMIN\DEXPANTHENOL\NIACINAMIDE\PYRIDOXINE HYDROCHLORIDE\RIBOFLAVIN 5^-PHOSPHATE SODIUM\THIAMINE HYDROCHLORIDE\VITAMIN B COMPLEX
  7. TIZANIDINE HYDROCHLORIDE TABLETS [Suspect]
     Active Substance: TIZANIDINE HYDROCHLORIDE
     Indication: INTERVERTEBRAL DISC PROTRUSION

REACTIONS (13)
  - Drug interaction [None]
  - Drug withdrawal syndrome [None]
  - Hypertension [None]
  - Delirium [None]
  - Intentional overdose [None]
  - Akathisia [None]
  - Anxiety [None]
  - Disorientation [None]
  - Leukocytosis [None]
  - Drug abuse [None]
  - Confusional state [None]
  - Hypotension [None]
  - Hypokalaemia [None]
